FAERS Safety Report 10041550 (Version 4)
Quarter: 2014Q2

REPORT INFORMATION
  Report Type: Report from Study
  Country: BE (occurrence: BE)
  Receive Date: 20140327
  Receipt Date: 20140407
  Transmission Date: 20141212
  Serious: Yes (Death, Hospitalization)
  Sender: FDA-Public Use
  Company Number: BE-CELGENEUS-013-C4047-14024217

PATIENT
  Age: 77 Year
  Sex: Male
  Weight: 74 kg

DRUGS (30)
  1. CC-4047 [Suspect]
     Indication: PLASMA CELL MYELOMA
     Dosage: 4 MILLIGRAM
     Route: 048
     Dates: start: 20140124, end: 20140213
  2. CC-4047 [Suspect]
     Dosage: 4 MILLIGRAM
     Route: 048
     Dates: start: 20140228, end: 20140312
  3. DEXAMETHASONE [Suspect]
     Indication: PLASMA CELL MYELOMA
     Dosage: 20 MILLIGRAM
     Route: 065
     Dates: start: 20140124, end: 20140214
  4. DEXAMETHASONE [Suspect]
     Dosage: 20 MILLIGRAM
     Route: 065
     Dates: start: 20140228, end: 20140312
  5. AGGRENOX [Concomitant]
     Indication: THROMBOSIS PROPHYLAXIS
     Dosage: 1 TABLET
     Route: 048
     Dates: start: 2004
  6. ALIZAPRIDE [Concomitant]
     Indication: NAUSEA
     Route: 048
     Dates: start: 20140205
  7. ALIZAPRIDE [Concomitant]
     Dosage: 150 MILLIGRAM
     Route: 041
     Dates: start: 20140226, end: 20140226
  8. ALIZAPRIDE [Concomitant]
     Dosage: 150 MILLIGRAM
     Route: 041
     Dates: start: 20140228, end: 20140301
  9. ALIZAPRIDE [Concomitant]
     Route: 041
     Dates: start: 20140226, end: 20140301
  10. MACROGOL [Concomitant]
     Indication: CONSTIPATION
     Route: 048
     Dates: start: 201206
  11. PANTOPRAZOL [Concomitant]
     Indication: DYSPEPSIA
     Dosage: 20 MILLIGRAM
     Route: 048
  12. TRAZODONE [Concomitant]
     Indication: INSOMNIA
     Dosage: 100 MILLIGRAM
     Route: 048
     Dates: start: 201209
  13. AMITRIPTYLLINE [Concomitant]
     Indication: NERVE COMPRESSION
     Dosage: 50 MILLIGRAM
     Route: 048
     Dates: start: 20140113
  14. MORFIN [Concomitant]
     Indication: PAIN
     Dosage: 37.5 MICROGRAM
     Route: 062
     Dates: start: 2012, end: 20140225
  15. MORFIN [Concomitant]
     Indication: BONE PAIN
     Route: 062
     Dates: start: 20140226
  16. MORFIN [Concomitant]
     Indication: BRONCHOPNEUMONIA
     Route: 048
     Dates: start: 20140226
  17. MORFIN [Concomitant]
     Dosage: 10 MILLIGRAM
     Route: 041
     Dates: start: 20140313
  18. PARACETAMOL [Concomitant]
     Indication: PAIN
     Route: 048
     Dates: end: 20140225
  19. PARACETAMOL [Concomitant]
     Indication: BONE PAIN
     Dosage: 4 GRAM
     Route: 048
     Dates: start: 20140226, end: 20140226
  20. PARACETAMOL [Concomitant]
     Indication: BRONCHOPNEUMONIA
     Dosage: 2 GRAM
     Route: 048
     Dates: start: 20140226, end: 20140226
  21. PARACETAMOL [Concomitant]
     Dosage: 4 GRAM
     Route: 048
     Dates: start: 20140227
  22. PARACETAMOL [Concomitant]
     Route: 048
     Dates: start: 20140311
  23. PARACETAMOL [Concomitant]
     Dosage: 1 GRAM
     Route: 041
     Dates: start: 20140311, end: 20140311
  24. HEXETIDINE [Concomitant]
     Indication: MUCOSAL INFLAMMATION
     Dosage: 30 MILLILITER
     Route: 048
     Dates: start: 20140124
  25. SODIUM CHLORIDE [Concomitant]
     Indication: BLOOD CREATININE INCREASED
     Dosage: 2000 MILLILITER
     Route: 041
     Dates: start: 20140124
  26. SODIUM CHLORIDE [Concomitant]
     Dosage: 500 MILLILITER
     Route: 041
     Dates: start: 20140226, end: 20140226
  27. MAALOX [Concomitant]
     Indication: DYSPEPSIA
     Route: 048
  28. ALLOPURINOL [Concomitant]
     Indication: MUCOSAL INFLAMMATION
     Dosage: 300 MILLIGRAM
     Route: 048
     Dates: start: 20140227, end: 20140228
  29. MOXIFLOXACIN [Concomitant]
     Indication: COUGH
     Dosage: 40 MILLIGRAM
     Route: 048
     Dates: start: 20140304
  30. MOXIFLOXACIN [Concomitant]
     Indication: NEUTROPHIL COUNT DECREASED
     Route: 065

REACTIONS (2)
  - Bronchopneumonia [Fatal]
  - Peripheral sensorimotor neuropathy [Not Recovered/Not Resolved]
